FAERS Safety Report 9682154 (Version 2)
Quarter: 2013Q4

REPORT INFORMATION
  Report Type: Report from Study
  Country: US (occurrence: US)
  Receive Date: 20131111
  Receipt Date: 20131121
  Transmission Date: 20140711
  Serious: Yes (Death)
  Sender: FDA-Public Use
  Company Number: US-ABBVIE-13P-163-1168164-00

PATIENT
  Age: 86 Year
  Sex: Male

DRUGS (9)
  1. FOLIC ACID [Concomitant]
     Indication: PRODUCT USED FOR UNKNOWN INDICATION
  2. HUMIRA [Suspect]
     Indication: PRODUCT USED FOR UNKNOWN INDICATION
     Route: 058
     Dates: start: 20121211
  3. AMLODIPINE BESYLATE [Concomitant]
     Indication: PRODUCT USED FOR UNKNOWN INDICATION
  4. METHOTREXATE [Concomitant]
     Indication: PRODUCT USED FOR UNKNOWN INDICATION
  5. PREDNISONE [Concomitant]
     Indication: PRODUCT USED FOR UNKNOWN INDICATION
  6. METOPROLOL SUCCINATE [Concomitant]
     Indication: PRODUCT USED FOR UNKNOWN INDICATION
  7. QUINAPRIL [Concomitant]
     Indication: PRODUCT USED FOR UNKNOWN INDICATION
  8. SULFASALAZINE [Concomitant]
     Indication: PRODUCT USED FOR UNKNOWN INDICATION
  9. ASPIRIN (E.C.) [Concomitant]
     Indication: PRODUCT USED FOR UNKNOWN INDICATION

REACTIONS (2)
  - Sepsis [Fatal]
  - Pneumonia [Fatal]
